FAERS Safety Report 23666250 (Version 5)
Quarter: 2024Q2

REPORT INFORMATION
  Report Type: Report from Study
  Country: US (occurrence: US)
  Receive Date: 20240324
  Receipt Date: 20240516
  Transmission Date: 20240716
  Serious: Yes (Hospitalization, Other)
  Sender: FDA-Public Use
  Company Number: US-JNJFOC-20240217557

PATIENT
  Age: 50 Year
  Sex: Female
  Weight: 105.5 kg

DRUGS (11)
  1. SELEXIPAG [Suspect]
     Active Substance: SELEXIPAG
     Indication: Pulmonary hypertension
     Route: 048
  2. SELEXIPAG [Suspect]
     Active Substance: SELEXIPAG
     Indication: Pulmonary arterial hypertension
     Dosage: UPTRAVI DOSE 1000 MCG TWICE DAILY USING 1 800MCG TABLET AND 1 200 MCG TABLET
     Route: 048
  3. SELEXIPAG [Suspect]
     Active Substance: SELEXIPAG
     Route: 048
  4. SELEXIPAG [Suspect]
     Active Substance: SELEXIPAG
     Route: 048
  5. SELEXIPAG [Suspect]
     Active Substance: SELEXIPAG
     Route: 048
  6. SELEXIPAG [Suspect]
     Active Substance: SELEXIPAG
     Route: 048
  7. SELEXIPAG [Suspect]
     Active Substance: SELEXIPAG
     Route: 048
  8. SELEXIPAG [Suspect]
     Active Substance: SELEXIPAG
     Route: 048
  9. OPSUMIT [Concomitant]
     Active Substance: MACITENTAN
  10. ADEMPAS [Concomitant]
     Active Substance: RIOCIGUAT
  11. XARELTO [Concomitant]
     Active Substance: RIVAROXABAN

REACTIONS (37)
  - Nausea [Not Recovered/Not Resolved]
  - Vomiting [Not Recovered/Not Resolved]
  - Blood magnesium decreased [Unknown]
  - Blood potassium decreased [Unknown]
  - Cardiac flutter [Not Recovered/Not Resolved]
  - Atrial fibrillation [Unknown]
  - Ventricular tachycardia [Unknown]
  - Loss of consciousness [Unknown]
  - Pain [Not Recovered/Not Resolved]
  - Diarrhoea [Not Recovered/Not Resolved]
  - Flushing [Not Recovered/Not Resolved]
  - Pulmonary oedema [Unknown]
  - Abdominal discomfort [Unknown]
  - Fatigue [Not Recovered/Not Resolved]
  - Headache [Not Recovered/Not Resolved]
  - Pain in jaw [Unknown]
  - Oedema peripheral [Not Recovered/Not Resolved]
  - Blood glucose increased [Unknown]
  - Fluid retention [Not Recovered/Not Resolved]
  - Chest pain [Unknown]
  - Muscle spasms [Not Recovered/Not Resolved]
  - Dizziness [Unknown]
  - Dehydration [Not Recovered/Not Resolved]
  - Urine output decreased [Unknown]
  - Bone pain [Unknown]
  - Hypersomnia [Unknown]
  - Retching [Unknown]
  - Swelling [Unknown]
  - Gout [Unknown]
  - Mental disorder [Unknown]
  - Weight decreased [Not Recovered/Not Resolved]
  - Fall [Unknown]
  - Oropharyngeal pain [Unknown]
  - Weight increased [Unknown]
  - Gait disturbance [Unknown]
  - Hypotension [Unknown]
  - Wrong technique in product usage process [Unknown]

NARRATIVE: CASE EVENT DATE: 20230101
